FAERS Safety Report 4287039-4 (Version None)
Quarter: 2004Q1

REPORT INFORMATION
  Report Type: 
  Country: None (occurrence: None)
  Receive Date: 20040204
  Receipt Date: 20040123
  Transmission Date: 20041129
  Serious: Yes (Hospitalization)
  Sender: FDA-Public Use
  Company Number: DE-JNJFOC-20040104361

PATIENT
  Age: 89 Year
  Sex: Female
  Weight: 50 kg

DRUGS (5)
  1. GALATMINE (GALANTAMINE) UNSPECIFIED [Suspect]
     Indication: DEMENTIA
     Dosage: 8 MG, IN 1 DAY, ORAL
     Route: 048
     Dates: start: 20031103
  2. ASPIRIN (TABLETS) ACETYLSALICYLIC ACID [Concomitant]
  3. METOPROLOL (TABLETS) METOPROLOL [Concomitant]
  4. NITRENDIPIN (NITRENDIPINE) TABLETS [Concomitant]
  5. MOLSIDOMIN (MOLSIDOMINE) TABLETS [Concomitant]

REACTIONS (2)
  - ANGINA PECTORIS [None]
  - HYPERTENSION [None]
